FAERS Safety Report 19690464 (Version 1)
Quarter: 2021Q3

REPORT INFORMATION
  Report Type: Spontaneous
  Country: US (occurrence: US)
  Receive Date: 20210812
  Receipt Date: 20210812
  Transmission Date: 20211014
  Serious: No
  Sender: FDA-Public Use
  Company Number: US-GLAXOSMITHKLINE-US2021AMR168304

PATIENT
  Sex: Male
  Weight: 65.77 kg

DRUGS (2)
  1. WELLBUTRIN [Suspect]
     Active Substance: BUPROPION HYDROCHLORIDE
     Indication: PRODUCT USED FOR UNKNOWN INDICATION
     Dosage: UNK
     Dates: start: 2001
  2. CHANTIX [Suspect]
     Active Substance: VARENICLINE TARTRATE
     Indication: EX-TOBACCO USER
     Dosage: UNK

REACTIONS (10)
  - Blood disorder [Unknown]
  - Mood altered [Unknown]
  - Homicidal ideation [Unknown]
  - Drug ineffective [Unknown]
  - Irritability [Unknown]
  - Surgery [Unknown]
  - Mental disorder [Unknown]
  - Anxiety [Unknown]
  - Insomnia [Unknown]
  - Pigmentation disorder [Unknown]
